FAERS Safety Report 25469673 (Version 1)
Quarter: 2025Q2

REPORT INFORMATION
  Report Type: Spontaneous
  Country: US (occurrence: None)
  Receive Date: 20250623
  Receipt Date: 20250623
  Transmission Date: 20250716
  Serious: Yes (Other)
  Sender: FDA-CTU
  Company Number: None

PATIENT
  Age: 27 Year
  Sex: Female
  Weight: 45 kg

DRUGS (2)
  1. VRAYLAR [Suspect]
     Active Substance: CARIPRAZINE
     Indication: Bipolar disorder
     Dosage: 1.5 MG/MG  DAILY ORAL
     Route: 048
     Dates: start: 20250623, end: 20250623
  2. VRAYLAR [Concomitant]
     Active Substance: CARIPRAZINE
     Dates: start: 20250623, end: 20250623

REACTIONS (5)
  - Dystonia [None]
  - Musculoskeletal disorder [None]
  - Hyperhidrosis [None]
  - Nausea [None]
  - Paraesthesia [None]

NARRATIVE: CASE EVENT DATE: 20250623
